FAERS Safety Report 6313169-9 (Version None)
Quarter: 2009Q3

REPORT INFORMATION
  Report Type: 
  Country: None (occurrence: None)
  Receive Date: 20090818
  Receipt Date: 20090810
  Transmission Date: 20100115
  Serious: Yes (Hospitalization)
  Sender: FDA-Public Use
  Company Number: PHHO2009US10030

PATIENT
  Sex: Female

DRUGS (3)
  1. MYFORTIC [Suspect]
     Indication: RENAL TRANSPLANT
     Dosage: 360 MG, BID
     Route: 048
     Dates: start: 20090604
  2. BELATACEPT [Suspect]
     Indication: RENAL TRANSPLANT
     Dosage: 325 MG/MONTHLY
     Dates: start: 20080730
  3. PREDNISOLONE [Suspect]
     Dosage: 7.5 MG, UNK
     Dates: start: 20080918

REACTIONS (5)
  - GASTRITIS [None]
  - MALAISE [None]
  - NAUSEA [None]
  - PYREXIA [None]
  - VOMITING [None]
